FAERS Safety Report 6661806-1 (Version None)
Quarter: 2010Q1

REPORT INFORMATION
  Report Type: 
  Country: None (occurrence: None)
  Receive Date: 20100331
  Receipt Date: 20090722
  Transmission Date: 20100710
  Serious: No
  Sender: FDA-Public Use
  Company Number: US-BRISTOL-MYERS SQUIBB COMPANY-14697957

PATIENT
  Age: 5 Decade
  Sex: Female

DRUGS (4)
  1. ERBITUX [Suspect]
     Indication: ANAL CANCER
     Dosage: 480MG=250M/M2.LOADING DOSE-400MG/M2=768MG IN 23FEB09,RESTARTED ON 15MAY09
     Route: 042
     Dates: start: 20090306
  2. ERBITUX [Suspect]
     Indication: LYMPHADENOPATHY
     Dosage: 480MG=250M/M2.LOADING DOSE-400MG/M2=768MG IN 23FEB09,RESTARTED ON 15MAY09
     Route: 042
     Dates: start: 20090306
  3. RADIATION THERAPY [Suspect]
     Indication: ANAL CANCER
  4. RADIATION THERAPY [Suspect]
     Indication: LYMPHADENOPATHY

REACTIONS (3)
  - ERYTHEMA [None]
  - SECRETION DISCHARGE [None]
  - SKIN PLAQUE [None]
